FAERS Safety Report 8241685-1 (Version None)
Quarter: 2012Q1

REPORT INFORMATION
  Report Type: 
  Country: None (occurrence: None)
  Receive Date: 20120328
  Receipt Date: 20120319
  Transmission Date: 20120608
  Serious: Yes (Hospitalization, Other)
  Sender: FDA-Public Use
  Company Number: US-ASTRAZENECA-2011SE14185

PATIENT
  Age: 62 Year
  Sex: Female

DRUGS (2)
  1. PULMICORT FLEXHALER [Suspect]
     Route: 055
  2. SYMBICORT [Suspect]
     Indication: CHRONIC OBSTRUCTIVE PULMONARY DISEASE
     Dosage: 160/4,5 MCG, DAILY
     Route: 055

REACTIONS (7)
  - OXYGEN SATURATION DECREASED [None]
  - MALAISE [None]
  - ROAD TRAFFIC ACCIDENT [None]
  - PERICARDIAL EFFUSION [None]
  - NECK INJURY [None]
  - DIABETES MELLITUS [None]
  - INJURY [None]
